FAERS Safety Report 8941849 (Version 3)
Quarter: 2013Q1

REPORT INFORMATION
  Report Type: Spontaneous
  Country: JP (occurrence: JP)
  Receive Date: 20121130
  Receipt Date: 20130118
  Transmission Date: 20140127
  Serious: Yes (Disabling)
  Sender: FDA-Public Use
  Company Number: JP-ASTRAZENECA-2012SE76564

PATIENT
  Age: 79 Year
  Sex: Female

DRUGS (1)
  1. OMEPRAL [Suspect]
     Route: 048
     Dates: start: 201005

REACTIONS (1)
  - Dementia [Recovering/Resolving]
